FAERS Safety Report 9820697 (Version 2)
Quarter: 2014Q3

REPORT INFORMATION
  Report Type: Spontaneous
  Country: US (occurrence: US)
  Receive Date: 20140116
  Receipt Date: 20140731
  Transmission Date: 20150326
  Serious: Yes (Hospitalization)
  Sender: FDA-Public Use
  Company Number: US-009507513-1401USA004121

PATIENT
  Sex: Female

DRUGS (1)
  1. NUVARING [Suspect]
     Active Substance: ETHINYL ESTRADIOL\ETONOGESTREL
     Indication: CONTRACEPTION
     Dosage: UNK
     Route: 067
     Dates: start: 201202

REACTIONS (17)
  - Dehydration [Unknown]
  - Fungal infection [Unknown]
  - Urinary tract infection [Unknown]
  - Fungal infection [Unknown]
  - Rash [Unknown]
  - Anaemia [Unknown]
  - Eczema [Unknown]
  - Pulmonary mass [Unknown]
  - Migraine [Unknown]
  - Menorrhagia [Unknown]
  - Deep vein thrombosis [Unknown]
  - Fungal infection [Unknown]
  - Fungal infection [Unknown]
  - Nausea [Unknown]
  - Vomiting [Unknown]
  - Viral infection [Unknown]
  - Dizziness [Unknown]

NARRATIVE: CASE EVENT DATE: 20120224
